FAERS Safety Report 20019424 (Version 1)
Quarter: 2021Q4

REPORT INFORMATION
  Report Type: Spontaneous
  Country: NL (occurrence: NL)
  Receive Date: 20211101
  Receipt Date: 20211101
  Transmission Date: 20220303
  Serious: Yes (Other)
  Sender: FDA-Public Use
  Company Number: None

PATIENT
  Sex: Male
  Weight: 80 kg

DRUGS (3)
  1. ADALIMUMAB [Suspect]
     Active Substance: ADALIMUMAB
     Indication: Psoriasis
     Dosage: 40 MG PER 2 WEEKS SC (0,8 ML)
     Route: 058
     Dates: start: 202105, end: 20210621
  2. OCULOTECT [POVIDONE] [Concomitant]
     Dosage: EYE DROPS, 50 MG/ML (MILLIGRAM PER MILLILITER)
  3. DURATEARS Z [Concomitant]
     Dosage: BEFORE THE NIGHT

REACTIONS (1)
  - Anxiety [Recovered/Resolved]
